FAERS Safety Report 22243957 (Version 1)
Quarter: 2023Q2

REPORT INFORMATION
  Report Type: Spontaneous
  Country: US (occurrence: None)
  Receive Date: 20230419
  Receipt Date: 20230419
  Transmission Date: 20230721
  Serious: No
  Sender: FDA-Public Use
  Company Number: None

PATIENT
  Sex: Female
  Weight: 63.5 kg

DRUGS (3)
  1. FLUPHENAZINE [Suspect]
     Active Substance: FLUPHENAZINE
     Indication: Mental disorder
     Dosage: OTHER FREQUENCY : EVERY 3 WEEKS;?
  2. PROLIXIN DECONOATE [Concomitant]
  3. CALCIUM [Concomitant]
     Active Substance: CALCIUM

REACTIONS (7)
  - Hypertonic bladder [None]
  - Weight increased [None]
  - Depression [None]
  - Hypertension [None]
  - Gait disturbance [None]
  - Glaucoma [None]
  - Pollakiuria [None]
